FAERS Safety Report 18402586 (Version 1)
Quarter: 2020Q4

REPORT INFORMATION
  Report Type: Spontaneous
  Country: GB (occurrence: GB)
  Receive Date: 20201019
  Receipt Date: 20201019
  Transmission Date: 20210114
  Serious: Yes (Hospitalization, Other)
  Sender: FDA-Public Use
  Company Number: GB-EXELIXIS-CABO-20033921

PATIENT
  Age: 70 Year
  Sex: Male
  Weight: 78 kg

DRUGS (8)
  1. PIPERACILLIN AND TAZOBACTAM [Concomitant]
     Active Substance: PIPERACILLIN SODIUM\TAZOBACTAM SODIUM
  2. ADCAL D3 [Concomitant]
     Active Substance: CALCIUM CARBONATE\CHOLECALCIFEROL
     Dosage: UNK
  3. CABOMETYX [Suspect]
     Active Substance: CABOZANTINIB S-MALATE
     Indication: RENAL CANCER METASTATIC
     Dosage: 40 MG, QD
     Route: 048
  4. DENOSUMAB [Suspect]
     Active Substance: DENOSUMAB
     Indication: RENAL CANCER METASTATIC
     Dosage: 120 MG, MO
     Route: 058
  5. CO-AMOXICLAV [Concomitant]
     Active Substance: AMOXICILLIN\CLAVULANATE POTASSIUM
  6. PARACETAMOL [Concomitant]
     Active Substance: ACETAMINOPHEN
  7. PREDNISOLONE. [Concomitant]
     Active Substance: PREDNISOLONE
  8. DALTEPARIN [Concomitant]
     Active Substance: DALTEPARIN

REACTIONS (1)
  - Pneumonitis [Unknown]

NARRATIVE: CASE EVENT DATE: 202005
